FAERS Safety Report 5933102-9 (Version None)
Quarter: 2008Q4

REPORT INFORMATION
  Report Type: 
  Country: None (occurrence: None)
  Receive Date: 20081023
  Receipt Date: 20060707
  Transmission Date: 20090506
  Serious: Yes (Death, Other)
  Sender: FDA-Public Use
  Company Number: 2006AL002224

PATIENT
  Sex: Male

DRUGS (8)
  1. METFORMIN HYDROCHLORIDE [Suspect]
     Indication: TYPE 2 DIABETES MELLITUS
     Dosage: PO
     Route: 048
     Dates: end: 20060416
  2. LISINOPRIL [Concomitant]
  3. ALLOPURINOL [Concomitant]
  4. ASPIRIN [Concomitant]
  5. ATORVASTATIN CALCIUM [Concomitant]
  6. BISOPROLOL FUMARATE [Concomitant]
  7. DOXAZOSIN MESYLATE [Concomitant]
  8. SILDENAFIL CITRATE [Concomitant]

REACTIONS (4)
  - ALCOHOL USE [None]
  - FALL [None]
  - LACTIC ACIDOSIS [None]
  - RENAL FAILURE [None]
